FAERS Safety Report 8298129-3 (Version None)
Quarter: 2012Q2

REPORT INFORMATION
  Report Type: 
  Country: None (occurrence: None)
  Receive Date: 20120419
  Receipt Date: 20120410
  Transmission Date: 20120825
  Serious: Yes (Hospitalization)
  Sender: FDA-Public Use
  Company Number: FR-ASTRAZENECA-2012SE17998

PATIENT
  Age: 12884 Day
  Sex: Male

DRUGS (1)
  1. QUETIAPINE FUMARATE [Suspect]
     Indication: SCHIZOPHRENIA
     Route: 048
     Dates: start: 20120310, end: 20120310

REACTIONS (10)
  - ANXIETY [None]
  - FEELING DRUNK [None]
  - HALLUCINATION [None]
  - MIOSIS [None]
  - MONOPLEGIA [None]
  - AGITATION [None]
  - TACHYCARDIA [None]
  - CONDITION AGGRAVATED [None]
  - DYSARTHRIA [None]
  - HEADACHE [None]
